FAERS Safety Report 18604293 (Version 1)
Quarter: 2020Q4

REPORT INFORMATION
  Report Type: Spontaneous
  Country: US (occurrence: US)
  Receive Date: 20201210
  Receipt Date: 20201210
  Transmission Date: 20210114
  Serious: Yes (Death)
  Sender: FDA-Public Use
  Company Number: None

PATIENT
  Sex: Male

DRUGS (13)
  1. METOPROL TAR [Concomitant]
  2. DILTIAZEM. [Concomitant]
     Active Substance: DILTIAZEM
  3. ISOSORB MONO [Concomitant]
     Active Substance: ISOSORBIDE MONONITRATE
  4. ROSUVASTATIN. [Concomitant]
     Active Substance: ROSUVASTATIN
  5. ELIQUIS [Concomitant]
     Active Substance: APIXABAN
  6. PHYTONADIONE. [Concomitant]
     Active Substance: PHYTONADIONE
  7. CHLORHEX GLU [Concomitant]
  8. DOFETILIDE 250MCG CAP [Suspect]
     Active Substance: DOFETILIDE
     Indication: ATRIAL FIBRILLATION
     Route: 048
     Dates: start: 20200618
  9. LOSARTAN POT [Concomitant]
     Active Substance: LOSARTAN POTASSIUM
  10. PANTOPRAZOLE [Concomitant]
     Active Substance: PANTOPRAZOLE
  11. TELMISARTAN. [Concomitant]
     Active Substance: TELMISARTAN
  12. MUPIROCIN. [Concomitant]
     Active Substance: MUPIROCIN
  13. TRAMADOL HCL [Concomitant]
     Active Substance: TRAMADOL HYDROCHLORIDE

REACTIONS (1)
  - Death [None]
